FAERS Safety Report 5948022-3 (Version None)
Quarter: 2008Q4

REPORT INFORMATION
  Report Type: 
  Country: None (occurrence: None)
  Receive Date: 20081111
  Receipt Date: 20081105
  Transmission Date: 20090506
  Serious: Yes (Death)
  Sender: FDA-Public Use
  Company Number: DE-WYE-G02275108

PATIENT
  Sex: Male
  Weight: 63 kg

DRUGS (6)
  1. TORISEL [Suspect]
     Indication: METASTATIC RENAL CELL CARCINOMA
     Route: 042
     Dates: start: 20080227, end: 20080227
  2. CLEMASTINE FUMARATE [Concomitant]
     Indication: PREMEDICATION
     Route: 042
     Dates: start: 20080227, end: 20080227
  3. TRAMADOL HCL [Concomitant]
     Dosage: 2 TABLETS PER DAY (DOSE UNKNOWN)
     Route: 048
  4. TRAMADOL HCL [Concomitant]
     Dosage: DROPS; AS REQUIRED
     Route: 048
  5. BISOPROLOL FUMARATE [Concomitant]
  6. NOVALGIN [Concomitant]
     Dosage: AS REQUIRED

REACTIONS (2)
  - CARDIOPULMONARY FAILURE [None]
  - DISEASE PROGRESSION [None]
